FAERS Safety Report 8618931-5 (Version None)
Quarter: 2012Q3

REPORT INFORMATION
  Report Type: 
  Country: None (occurrence: None)
  Receive Date: 20120824
  Receipt Date: 20120815
  Transmission Date: 20120928
  Serious: Yes (Other)
  Sender: FDA-Public Use
  Company Number: JP-ABBOTT-12P-087-0969992-00

PATIENT

DRUGS (5)
  1. VALPROIC ACID [Suspect]
     Indication: PRODUCT USED FOR UNKNOWN INDICATION
  2. OTHER [Concomitant]
     Indication: PRODUCT USED FOR UNKNOWN INDICATION
  3. NITRAZEPAM [Concomitant]
     Indication: PRODUCT USED FOR UNKNOWN INDICATION
  4. GOODMIN [Concomitant]
     Indication: PRODUCT USED FOR UNKNOWN INDICATION
  5. PAXIL [Concomitant]
     Indication: PRODUCT USED FOR UNKNOWN INDICATION

REACTIONS (1)
  - DRUG DEPENDENCE [None]
